FAERS Safety Report 15469703 (Version 2)
Quarter: 2018Q4

REPORT INFORMATION
  Report Type: Spontaneous
  Country: VN (occurrence: VN)
  Receive Date: 20181005
  Receipt Date: 20181218
  Transmission Date: 20190205
  Serious: Yes (Death, Other)
  Sender: FDA-Public Use
  Company Number: VN-ROCHE-2194974

PATIENT

DRUGS (1)
  1. ACTILYSE [Suspect]
     Active Substance: ALTEPLASE
     Indication: PULMONARY EMBOLISM
     Dosage: 100 MG CONTINUOUS IV IN 2 HOURS
     Route: 042

REACTIONS (4)
  - Pneumonia [Fatal]
  - Pulmonary embolism [Fatal]
  - Respiratory failure [Fatal]
  - Lung neoplasm malignant [Fatal]
